FAERS Safety Report 9392706 (Version 1)
Quarter: 2013Q3

REPORT INFORMATION
  Report Type: Spontaneous
  Country: US (occurrence: None)
  Receive Date: 20130708
  Receipt Date: 20130708
  Transmission Date: 20140515
  Serious: No
  Sender: FDA-Public Use
  Company Number: None

PATIENT
  Sex: Female

DRUGS (1)
  1. ENBREL [Suspect]
     Indication: RHEUMATOID ARTHRITIS
     Route: 058
     Dates: start: 20130129, end: 20130601

REACTIONS (7)
  - Rash [None]
  - Arthralgia [None]
  - Nausea [None]
  - Mood swings [None]
  - Restless legs syndrome [None]
  - Alopecia [None]
  - Palpitations [None]
